FAERS Safety Report 5595051-8 (Version None)
Quarter: 2008Q1

REPORT INFORMATION
  Report Type: 
  Country: None (occurrence: None)
  Receive Date: 20080117
  Receipt Date: 20080102
  Transmission Date: 20080703
  Serious: Yes (Death)
  Sender: FDA-Public Use
  Company Number: TH-ROCHE-541077

PATIENT
  Age: 54 Year
  Sex: Female
  Weight: 56 kg

DRUGS (3)
  1. CAPECITABINE [Suspect]
     Dosage: 3500 MG, QD
     Route: 065
     Dates: start: 20071207
  2. BLINDED BEVACIZUMAB [Suspect]
     Dosage: 840 MG, Q3W
     Route: 042
     Dates: start: 20071207
  3. BLINDED PLACEBO [Suspect]
     Dosage: 840 MG, Q3W
     Route: 042
     Dates: start: 20071207

REACTIONS (1)
  - DIARRHOEA [None]
